FAERS Safety Report 13727027 (Version 1)
Quarter: 2017Q3

REPORT INFORMATION
  Report Type: Spontaneous
  Country: DE (occurrence: DE)
  Receive Date: 20170706
  Receipt Date: 20170706
  Transmission Date: 20171127
  Serious: Yes (Hospitalization)
  Sender: FDA-Public Use
  Company Number: DE-SHIRE-DE201714564

PATIENT
  Age: 52 Year
  Sex: Male

DRUGS (12)
  1. ELVANSE [Suspect]
     Active Substance: LISDEXAMFETAMINE DIMESYLATE
     Dosage: 70 MG, 1X/DAY:QD (IN THE MORNING)
     Route: 048
  2. AMLODIPIN                          /00972401/ [Concomitant]
     Active Substance: AMLODIPINE BESYLATE
     Indication: PRODUCT USED FOR UNKNOWN INDICATION
     Dosage: 10 MG, UNKNOWN
     Route: 065
  3. MUTAFLOR [Concomitant]
     Active Substance: ESCHERICHIA COLI
     Indication: PRODUCT USED FOR UNKNOWN INDICATION
     Dosage: 4 DF, UNKNOWN (PER DAY)
     Route: 065
  4. ELVANSE [Suspect]
     Active Substance: LISDEXAMFETAMINE DIMESYLATE
     Dosage: 140 MG (2 X 70 MG), 1X/DAY:QD (IN THE MORNING)
     Route: 048
  5. VENLAFAXIN [Concomitant]
     Active Substance: VENLAFAXINE HYDROCHLORIDE
     Indication: PRODUCT USED FOR UNKNOWN INDICATION
     Dosage: 150 MG, UNKNOWN
     Route: 065
  6. ELVANSE [Suspect]
     Active Substance: LISDEXAMFETAMINE DIMESYLATE
     Dosage: 50 MG, 1X/DAY:QD (AT NOON)
     Route: 048
  7. ELVANSE [Suspect]
     Active Substance: LISDEXAMFETAMINE DIMESYLATE
     Indication: ATTENTION DEFICIT/HYPERACTIVITY DISORDER
     Dosage: 70 MG, UNKNOWN
     Route: 048
  8. ELVANSE [Suspect]
     Active Substance: LISDEXAMFETAMINE DIMESYLATE
     Dosage: 70 MG, 1X/DAY:QD (IN THE MORNING)
     Route: 048
     Dates: start: 20170621
  9. RAMIPRIL. [Concomitant]
     Active Substance: RAMIPRIL
     Indication: PRODUCT USED FOR UNKNOWN INDICATION
     Dosage: 5 MG, UNKNOWN
     Route: 065
  10. CIALIS [Concomitant]
     Active Substance: TADALAFIL
     Indication: PROSTATIC DISORDER
     Dosage: 5 MG, 1X/DAY:QD (EVENINGS)
     Route: 065
  11. ELVANSE [Suspect]
     Active Substance: LISDEXAMFETAMINE DIMESYLATE
     Dosage: 70 MG, 1X/DAY:QD (AT NOON)
     Route: 048
     Dates: start: 20170621
  12. BISOPROLOL [Concomitant]
     Active Substance: BISOPROLOL
     Indication: PRODUCT USED FOR UNKNOWN INDICATION
     Dosage: 5 MG, UNKNOWN
     Route: 065

REACTIONS (7)
  - Prescribed overdose [Not Recovered/Not Resolved]
  - Off label use [Not Recovered/Not Resolved]
  - Prostatic disorder [Unknown]
  - Drug effect decreased [Unknown]
  - Unevaluable event [Unknown]
  - Inappropriate schedule of drug administration [Not Recovered/Not Resolved]
  - Binge eating [Unknown]
